FAERS Safety Report 6573318-4 (Version None)
Quarter: 2010Q1

REPORT INFORMATION
  Report Type: 
  Country: None (occurrence: None)
  Receive Date: 20100208
  Receipt Date: 20100127
  Transmission Date: 20100710
  Serious: Yes (Other)
  Sender: FDA-Public Use
  Company Number: BR-PFIZER INC-2010010965

PATIENT
  Age: 59 Year
  Sex: Female
  Weight: 77 kg

DRUGS (5)
  1. AROMASIN [Suspect]
     Indication: BREAST CANCER METASTATIC
     Dosage: 25 MG, 1X/DAY
     Route: 048
     Dates: start: 20090801
  2. TAXOL [Concomitant]
     Indication: BREAST CANCER METASTATIC
     Dosage: UNK
     Dates: start: 20090901
  3. CARBOPLATIN [Concomitant]
     Indication: BREAST CANCER METASTATIC
     Dosage: UNK
     Dates: start: 20090901
  4. ZOMETA ACID [Concomitant]
     Indication: BREAST CANCER METASTATIC
     Dosage: UNK
     Dates: start: 20090901
  5. DECADRON [Concomitant]
     Dosage: UNK

REACTIONS (2)
  - PARAESTHESIA [None]
  - SENSORY LOSS [None]
